FAERS Safety Report 6827154-1 (Version None)
Quarter: 2010Q3

REPORT INFORMATION
  Report Type: 
  Country: None (occurrence: None)
  Receive Date: 20100709
  Receipt Date: 20100701
  Transmission Date: 20110219
  Serious: Yes (Other)
  Sender: FDA-Public Use
  Company Number: US-SANOFI-AVENTIS-2010SA038958

PATIENT
  Sex: Male

DRUGS (1)
  1. PLAVIX [Suspect]
     Route: 048

REACTIONS (1)
  - PERIPHERAL ARTERY ANEURYSM [None]
